FAERS Safety Report 7832454-2 (Version None)
Quarter: 2011Q4

REPORT INFORMATION
  Report Type: 
  Country: None (occurrence: None)
  Receive Date: 20111023
  Receipt Date: 20111018
  Transmission Date: 20120403
  Serious: Yes (Death, Hospitalization)
  Sender: FDA-Public Use
  Company Number: HU-ELI_LILLY_AND_COMPANY-HU201110005407

PATIENT
  Sex: Male

DRUGS (7)
  1. EZETIMIBE [Concomitant]
     Dosage: UNK
  2. ASPIRIN [Concomitant]
     Dosage: UNK
  3. BETA BLOCKING AGENTS [Concomitant]
     Dosage: UNK
  4. SAXAGLIPTIN [Concomitant]
     Indication: TYPE 2 DIABETES MELLITUS
     Dosage: UNK
     Dates: start: 20100816, end: 20110530
  5. HUMULIN R [Suspect]
     Indication: TYPE 2 DIABETES MELLITUS
     Dosage: 42 IU, UNK
     Route: 058
  6. INSULIN DETEMIR [Concomitant]
     Indication: TYPE 2 DIABETES MELLITUS
     Dosage: 34 IU, UNK
  7. PLACEBO [Concomitant]
     Dosage: UNK
     Dates: start: 20100816, end: 20110530

REACTIONS (4)
  - CARDIOGENIC SHOCK [None]
  - HYPOGLYCAEMIA [None]
  - CARDIAC FAILURE [None]
  - HYPERGLYCAEMIA [None]
